FAERS Safety Report 7946907-X (Version None)
Quarter: 2011Q4

REPORT INFORMATION
  Report Type: 
  Country: None (occurrence: None)
  Receive Date: 20111129
  Receipt Date: 20111125
  Transmission Date: 20120403
  Serious: Yes (Death, Other)
  Sender: FDA-Public Use
  Company Number: US-PFIZER INC-US-WYE-H08944509

PATIENT
  Sex: Female
  Weight: 56.69 kg

DRUGS (6)
  1. PROMETHAZINE HCL [Suspect]
     Indication: PRODUCT USED FOR UNKNOWN INDICATION
     Dosage: UNKNOWN
     Route: 065
     Dates: start: 20090101
  2. CANNABIS [Concomitant]
     Route: 065
  3. TEMAZEPAM [Suspect]
     Dosage: OVERDOSE AMOUNT UNKNOWN
     Route: 065
     Dates: start: 20090119, end: 20090119
  4. MORPHINE SULFATE [Suspect]
     Dosage: OVERDOSE AMOUNT UNKNOWN
     Route: 065
     Dates: start: 20090119, end: 20090119
  5. CODEINE [Concomitant]
     Route: 065
  6. DIAZEPAM [Suspect]
     Dosage: OVERDOSE AMOUNT UNKNOWN
     Route: 065
     Dates: start: 20090119, end: 20090119

REACTIONS (4)
  - ACCIDENTAL OVERDOSE [None]
  - SUBSTANCE ABUSE [None]
  - HEADACHE [None]
  - TOXICITY TO VARIOUS AGENTS [None]
